FAERS Safety Report 11147867 (Version 1)
Quarter: 2015Q2

REPORT INFORMATION
  Report Type: Spontaneous
  Country: GB (occurrence: GB)
  Receive Date: 20150529
  Receipt Date: 20150529
  Transmission Date: 20150821
  Serious: Yes (Other)
  Sender: FDA-Public Use
  Company Number: GB-AMGEN-GBRSP2015051955

PATIENT
  Age: 58 Year
  Sex: Male
  Weight: 107.6 kg

DRUGS (9)
  1. FUROSEMIDE. [Concomitant]
     Active Substance: FUROSEMIDE
     Dosage: 40 MG, DAILY
  2. PRAVASTATIN SODIUM. [Concomitant]
     Active Substance: PRAVASTATIN SODIUM
     Dosage: 20 MG, DAILY
  3. BECLOMETASONE DIPROPIONATE [Concomitant]
     Active Substance: BECLOMETHASONE DIPROPIONATE
     Dosage: 600 DAILY
  4. ASPIRIN                            /00002701/ [Concomitant]
     Active Substance: ASPIRIN
     Dosage: 75 MG, DAILY
  5. SALBUTAMOL [Concomitant]
     Active Substance: ALBUTEROL
     Dosage: DAILY DOSE
  6. IVABRADINE [Suspect]
     Active Substance: IVABRADINE
     Indication: ANGINA PECTORIS
     Dosage: 5 MG, BID
     Route: 048
     Dates: start: 201501, end: 20150501
  7. RAMIPRIL. [Concomitant]
     Active Substance: RAMIPRIL
     Dosage: 5 MG, DAILY
  8. IVABRADINE [Suspect]
     Active Substance: IVABRADINE
     Dosage: 2.5 MG, BID
     Route: 065
     Dates: start: 201501, end: 2015
  9. METFORMIN HYDROCHLORIDE. [Concomitant]
     Active Substance: METFORMIN HYDROCHLORIDE
     Dosage: 2 G, DAILY

REACTIONS (3)
  - Flushing [Recovering/Resolving]
  - Impaired driving ability [Recovered/Resolved]
  - Photopsia [Recovered/Resolved]

NARRATIVE: CASE EVENT DATE: 2015
